FAERS Safety Report 18332212 (Version 1)
Quarter: 2020Q3

REPORT INFORMATION
  Report Type: Spontaneous
  Country: FR (occurrence: FR)
  Receive Date: 20200930
  Receipt Date: 20200930
  Transmission Date: 20201103
  Serious: Yes (Hospitalization)
  Sender: FDA-Public Use
  Company Number: NVSC2020FR260624

PATIENT
  Age: 16 Year
  Sex: Female
  Weight: 83.4 kg

DRUGS (3)
  1. LERCANIDIPINE [Suspect]
     Active Substance: LERCANIDIPINE
     Indication: POISONING DELIBERATE
     Dosage: 200 MG, ONCE/SINGLE
     Route: 048
     Dates: start: 20200814, end: 20200814
  2. METOCLOPRAMIDE. [Suspect]
     Active Substance: METOCLOPRAMIDE
     Indication: POISONING DELIBERATE
     Dosage: 225 MG, ONCE/SINGLE
     Route: 048
     Dates: start: 20200814, end: 20200814
  3. FUROSEMIDE. [Suspect]
     Active Substance: FUROSEMIDE
     Indication: POISONING DELIBERATE
     Dosage: 200 MG, ONCE/SINGLE
     Route: 048
     Dates: start: 20200814, end: 20200814

REACTIONS (1)
  - Haemodynamic instability [Recovered/Resolved]

NARRATIVE: CASE EVENT DATE: 20200814
